FAERS Safety Report 9084151 (Version 1)
Quarter: 2013Q1

REPORT INFORMATION
  Report Type: Report from Study
  Country: US (occurrence: US)
  Receive Date: 20130131
  Receipt Date: 20130131
  Transmission Date: 20140127
  Serious: No
  Sender: FDA-Public Use
  Company Number: US-ABBOTT-12P-163-0990185-00

PATIENT
  Sex: Female
  Weight: 73.09 kg

DRUGS (7)
  1. HUMIRA [Suspect]
     Indication: PSORIATIC ARTHROPATHY
     Dates: start: 2003, end: 201208
  2. HUMIRA [Suspect]
     Dates: start: 201208
  3. CLOBETASOL CREAM [Concomitant]
     Indication: PSORIASIS
  4. GABAPENTIN [Concomitant]
     Indication: PSORIATIC ARTHROPATHY
  5. CYMBALTA [Concomitant]
     Indication: PAIN
  6. TIZANADINE [Concomitant]
     Indication: PRODUCT USED FOR UNKNOWN INDICATION
  7. PREVASTATIN [Concomitant]
     Indication: PRODUCT USED FOR UNKNOWN INDICATION

REACTIONS (2)
  - Psoriatic arthropathy [Not Recovered/Not Resolved]
  - Psoriasis [Not Recovered/Not Resolved]
